FAERS Safety Report 9852376 (Version 4)
Quarter: 2014Q1

REPORT INFORMATION
  Report Type: Spontaneous
  Country: JP (occurrence: JP)
  Receive Date: 20140129
  Receipt Date: 20140310
  Transmission Date: 20141002
  Serious: Yes (Other)
  Sender: FDA-Public Use
  Company Number: JP-ASTELLAS-2014JP000675

PATIENT
  Age: 74 Year
  Sex: Male

DRUGS (3)
  1. BETANIS [Suspect]
     Indication: HYPERTONIC BLADDER
     Dosage: 25 MG, UNKNOWN/D
     Route: 048
     Dates: start: 201310
  2. FLIVAS [Suspect]
     Indication: BENIGN PROSTATIC HYPERPLASIA
     Dosage: UNK
     Route: 048
     Dates: start: 201305, end: 201309
  3. URIEF [Suspect]
     Indication: BENIGN PROSTATIC HYPERPLASIA
     Dosage: 8 MG, UNKNOWN/D
     Route: 048
     Dates: start: 201309

REACTIONS (1)
  - Prostate cancer [Not Recovered/Not Resolved]
